FAERS Safety Report 4521582-5 (Version None)
Quarter: 2004Q4

REPORT INFORMATION
  Report Type: 
  Country: None (occurrence: None)
  Receive Date: 20041208
  Receipt Date: 20041208
  Transmission Date: 20050328
  Serious: Yes (Hospitalization)
  Sender: FDA-Public Use
  Company Number: None

PATIENT
  Age: 51 Year
  Sex: Female

DRUGS (3)
  1. CELECOXIB    100MG [Suspect]
     Indication: RHEUMATOID ARTHRITIS
     Dosage: 100MG  BID ORAL
     Route: 048
     Dates: start: 20041006, end: 20041007
  2. FLEET PHOSPHO SODA [Concomitant]
  3. BISACODYL [Concomitant]

REACTIONS (3)
  - ERYTHEMA [None]
  - SWELLING FACE [None]
  - URTICARIA [None]
